FAERS Safety Report 12145462 (Version 1)
Quarter: 2016Q1

REPORT INFORMATION
  Report Type: Spontaneous
  Country: KR (occurrence: KR)
  Receive Date: 20160304
  Receipt Date: 20160304
  Transmission Date: 20160526
  Serious: Yes (Hospitalization)
  Sender: FDA-Public Use
  Company Number: KR-AMGEN-KORCT2016027072

PATIENT
  Age: 32 Year
  Sex: Male
  Weight: 68.3 kg

DRUGS (32)
  1. DOXORUBICIN [Concomitant]
     Active Substance: DOXORUBICIN
     Dosage: 90 MG, UNK
     Route: 042
     Dates: start: 20150223, end: 20150223
  2. DOXORUBICIN [Concomitant]
     Active Substance: DOXORUBICIN
     Dosage: 90 MG, UNK
     Route: 042
     Dates: start: 20150317, end: 20150317
  3. VINCRISTINE [Concomitant]
     Active Substance: VINCRISTINE
     Dosage: 2 MG, UNK
     Route: 042
     Dates: start: 20150223, end: 20150223
  4. SODIUM BICARBONATE. [Concomitant]
     Active Substance: SODIUM BICARBONATE
     Dosage: 4 G, UNK
     Route: 048
     Dates: start: 20150407, end: 20150430
  5. RITUXIMAB [Concomitant]
     Active Substance: RITUXIMAB
     Dosage: 678 MG, UNK
     Route: 042
     Dates: start: 20150317, end: 20150317
  6. CYCLOPHOSPHAMIDE. [Concomitant]
     Active Substance: CYCLOPHOSPHAMIDE
     Dosage: 1355 MG, UNK
     Route: 042
     Dates: start: 20150223, end: 20150223
  7. PREDNISOLONE. [Concomitant]
     Active Substance: PREDNISOLONE
     Dosage: 100 MG, UNK
     Route: 048
     Dates: start: 20150407, end: 20150407
  8. NORMAL SALINE [Concomitant]
     Active Substance: SODIUM CHLORIDE
     Dosage: 1000 ML, UNK
     Route: 042
     Dates: start: 20150317, end: 20150319
  9. MACPERAN [Concomitant]
     Dosage: 15 MG, UNK
     Route: 048
     Dates: start: 20150224, end: 20150430
  10. BACTROBAN [Concomitant]
     Active Substance: MUPIROCIN\MUPIROCIN CALCIUM
     Dosage: 10 G, UNK
     Route: 061
     Dates: start: 20150416, end: 20150430
  11. G-LASTA [Suspect]
     Active Substance: PEGFILGRASTIM
     Dosage: 6 MG, 1X/3WEEKS
     Route: 058
     Dates: start: 20150318, end: 20150318
  12. PREDNISOLONE. [Concomitant]
     Active Substance: PREDNISOLONE
     Dosage: 100 MG, UNK
     Route: 048
     Dates: start: 20150223, end: 20150224
  13. MACPERAN [Concomitant]
     Dosage: 30 MG, UNK
     Route: 042
     Dates: start: 20150317, end: 20150407
  14. DEXTROSE. [Concomitant]
     Active Substance: DEXTROSE
     Dosage: 200 ML, UNK
     Route: 042
     Dates: start: 20150317, end: 20150429
  15. VITAMINE D3 B.O.N. [Concomitant]
     Dosage: 2 ML, UNK
     Route: 030
     Dates: start: 20150224, end: 20150224
  16. G-LASTA [Suspect]
     Active Substance: PEGFILGRASTIM
     Dosage: 6 MG, 1X/3WEEKS
     Route: 058
     Dates: start: 20150408, end: 20150408
  17. VINCRISTINE [Concomitant]
     Active Substance: VINCRISTINE
     Dosage: 2 MG, UNK
     Route: 042
     Dates: start: 20150317, end: 20150317
  18. ACETAMINOPHEN. [Concomitant]
     Active Substance: ACETAMINOPHEN
     Dosage: 650 MG, UNK
     Route: 048
     Dates: start: 20150317, end: 20150407
  19. EMEND [Concomitant]
     Active Substance: APREPITANT
     Dosage: 125 MG, UNK
     Route: 048
     Dates: start: 20150224, end: 20150429
  20. RITUXIMAB [Concomitant]
     Active Substance: RITUXIMAB
     Dosage: 678 MG, UNK
     Route: 042
     Dates: start: 20150407, end: 20150407
  21. PIPRINHYDRINATE [Concomitant]
     Dosage: 3 MG, UNK
     Route: 042
     Dates: start: 20150317, end: 20150317
  22. ZYLORIC [Concomitant]
     Active Substance: ALLOPURINOL
     Dosage: 200 MG, UNK
     Route: 048
     Dates: start: 20150224, end: 20150225
  23. DOXORUBICIN [Concomitant]
     Active Substance: DOXORUBICIN
     Dosage: 90 MG, UNK
     Route: 042
     Dates: start: 20150407, end: 20150407
  24. VINCRISTINE [Concomitant]
     Active Substance: VINCRISTINE
     Dosage: 2 MG, UNK
     Route: 042
     Dates: start: 20150407, end: 20150407
  25. PREDNISOLONE. [Concomitant]
     Active Substance: PREDNISOLONE
     Dosage: 100 MG, UNK
     Route: 048
     Dates: start: 20150317, end: 20150318
  26. CYCLOPHOSPHAMIDE. [Concomitant]
     Active Substance: CYCLOPHOSPHAMIDE
     Dosage: 1355 MG, UNK
     Route: 042
     Dates: start: 20150317, end: 20150317
  27. SANCUSO [Concomitant]
     Active Substance: GRANISETRON
     Dosage: 34.3 MG, UNK
     Route: 061
     Dates: start: 20150317, end: 20150407
  28. CURAN [Concomitant]
     Dosage: 150 MG, UNK
     Route: 048
     Dates: start: 20150227, end: 20150423
  29. G-LASTA [Suspect]
     Active Substance: PEGFILGRASTIM
     Indication: FEBRILE NEUTROPENIA
     Dosage: 6 MG, 1X/3WEEKS
     Route: 058
     Dates: start: 20150224, end: 20150224
  30. RITUXIMAB [Concomitant]
     Active Substance: RITUXIMAB
     Dosage: 678 MG, UNK
     Route: 042
     Dates: start: 20150223, end: 20150223
  31. CYCLOPHOSPHAMIDE. [Concomitant]
     Active Substance: CYCLOPHOSPHAMIDE
     Dosage: 1355 MG, UNK
     Route: 042
     Dates: start: 20150407, end: 20150407
  32. TANTUM                             /00052302/ [Concomitant]
     Dosage: 300 ML, UNK
     Route: 065
     Dates: start: 20150225, end: 20150225

REACTIONS (1)
  - Pyrexia [Recovered/Resolved]

NARRATIVE: CASE EVENT DATE: 20150422
